FAERS Safety Report 17955553 (Version 1)
Quarter: 2020Q2

REPORT INFORMATION
  Report Type: Spontaneous
  Country: US (occurrence: US)
  Receive Date: 20200626
  Receipt Date: 20200626
  Transmission Date: 20200714
  Serious: Yes (Hospitalization)
  Sender: FDA-Public Use
  Company Number: None

PATIENT
  Age: 60 Year
  Sex: Male

DRUGS (16)
  1. ASPIRIN. [Concomitant]
     Active Substance: ASPIRIN
  2. ALBUTEROL. [Concomitant]
     Active Substance: ALBUTEROL
  3. ATORVASTATIN [Concomitant]
     Active Substance: ATORVASTATIN
  4. POTASSIUM [Concomitant]
     Active Substance: POTASSIUM
  5. TIZANIDINE. [Concomitant]
     Active Substance: TIZANIDINE
  6. LISINOPRIL. [Concomitant]
     Active Substance: LISINOPRIL
  7. FLEXERIL [Concomitant]
     Active Substance: CYCLOBENZAPRINE HYDROCHLORIDE
  8. OMEPRAZOLE. [Concomitant]
     Active Substance: OMEPRAZOLE
  9. HUMIRA [Suspect]
     Active Substance: ADALIMUMAB
     Indication: PSORIASIS
     Route: 058
  10. MELOXICAM. [Concomitant]
     Active Substance: MELOXICAM
  11. NITROGLYCERIN. [Concomitant]
     Active Substance: NITROGLYCERIN
  12. SEROQUEL [Concomitant]
     Active Substance: QUETIAPINE FUMARATE
  13. TOPAMAX [Concomitant]
     Active Substance: TOPIRAMATE
  14. FIORICET [Concomitant]
     Active Substance: ACETAMINOPHEN\BUTALBITAL\CAFFEINE
  15. GABAPENTIN. [Concomitant]
     Active Substance: GABAPENTIN
  16. MELATONIN [Concomitant]
     Active Substance: MELATONIN

REACTIONS (4)
  - Condition aggravated [None]
  - Cerebrovascular accident [None]
  - Aneurysm [None]
  - Hypoaesthesia [None]
